FAERS Safety Report 5755214-5 (Version None)
Quarter: 2008Q2

REPORT INFORMATION
  Report Type: 
  Country: None (occurrence: None)
  Receive Date: 20080602
  Receipt Date: 20080522
  Transmission Date: 20081010
  Serious: Yes (Hospitalization, Other)
  Sender: FDA-Public Use
  Company Number: US-NOVOPROD-274059

PATIENT
  Sex: Male
  Weight: 49.1 kg

DRUGS (2)
  1. NORDITROPIN NORDIFLEX [Suspect]
     Indication: GROWTH HORMONE DEFICIENCY
     Dosage: 1.95 MG, 6 DAYS/WEEK
     Route: 058
     Dates: start: 20080101, end: 20080414
  2. NASONEX [Suspect]
     Indication: HYPERSENSITIVITY
     Dosage: UNK, PRN
     Route: 045

REACTIONS (1)
  - PAPILLOEDEMA [None]
